FAERS Safety Report 15105321 (Version 2)
Quarter: 2018Q3

REPORT INFORMATION
  Report Type: Report from Study
  Country: None (occurrence: CA)
  Receive Date: 20180704
  Receipt Date: 20180824
  Transmission Date: 20181010
  Serious: Yes (Hospitalization, Other)
  Sender: FDA-Public Use
  Company Number: CA-ABBVIE-18K-028-2391087-00

PATIENT
  Sex: Male
  Weight: 124.8 kg

DRUGS (2)
  1. HUMIRA [Suspect]
     Active Substance: ADALIMUMAB
     Indication: CROHN^S DISEASE
     Route: 058
     Dates: start: 20171108, end: 20180612
  2. PREDNISONE. [Concomitant]
     Active Substance: PREDNISONE
     Indication: CROHN^S DISEASE
     Dosage: TAPERS
     Route: 048

REACTIONS (23)
  - Stent placement [Unknown]
  - Oedema peripheral [Unknown]
  - Pain [Unknown]
  - Small intestine carcinoma [Not Recovered/Not Resolved]
  - Duodenal stenosis [Unknown]
  - Testicular abscess [Not Recovered/Not Resolved]
  - Gastrointestinal stoma complication [Not Recovered/Not Resolved]
  - Rectal cancer [Not Recovered/Not Resolved]
  - Gastrointestinal tract adenoma [Unknown]
  - Dermal cyst [Unknown]
  - Wound secretion [Not Recovered/Not Resolved]
  - Pneumonia aspiration [Not Recovered/Not Resolved]
  - Anorectal swelling [Not Recovered/Not Resolved]
  - Vomiting [Not Recovered/Not Resolved]
  - Adenocarcinoma [Unknown]
  - Fibrosis [Unknown]
  - Gastrointestinal fistula [Unknown]
  - Nasal sinus cancer [Not Recovered/Not Resolved]
  - Colon cancer [Not Recovered/Not Resolved]
  - Gastrointestinal carcinoma [Unknown]
  - Induration [Unknown]
  - Lymphadenopathy [Not Recovered/Not Resolved]
  - Nausea [Not Recovered/Not Resolved]

NARRATIVE: CASE EVENT DATE: 2018
